FAERS Safety Report 6693649-7 (Version None)
Quarter: 2010Q2

REPORT INFORMATION
  Report Type: 
  Country: None (occurrence: None)
  Receive Date: 20100423
  Receipt Date: 20100412
  Transmission Date: 20101027
  Serious: Yes (Other)
  Sender: FDA-Public Use
  Company Number: US-ASTRAZENECA-2009UW14586

PATIENT
  Age: 10565 Day
  Sex: Male
  Weight: 179.2 kg

DRUGS (1)
  1. SEROQUEL [Suspect]
     Dosage: 200-600 MG AT NIGHT
     Route: 048
     Dates: start: 20040709

REACTIONS (3)
  - DIABETES MELLITUS [None]
  - DIABETIC NEUROPATHY [None]
  - ERECTILE DYSFUNCTION [None]
